FAERS Safety Report 4741989-0 (Version None)
Quarter: 2005Q3

REPORT INFORMATION
  Report Type: 
  Country: None (occurrence: None)
  Receive Date: 20050801
  Receipt Date: 20040802
  Transmission Date: 20060218
  Serious: Yes (Life-Threatening)
  Sender: FDA-Public Use
  Company Number: 208195

PATIENT
  Age: 67 Year
  Sex: Male
  Weight: 76.2 kg

DRUGS (4)
  1. RITUXAN [Suspect]
     Indication: CHRONIC LYMPHOCYTIC LEUKAEMIA
     Dosage: 750 MG, INTRAVENOUS
     Route: 042
     Dates: start: 20040712, end: 20040712
  2. BENADRYL [Concomitant]
  3. DECADRON [Concomitant]
  4. ALLOPURINOL [Concomitant]

REACTIONS (1)
  - INFUSION RELATED REACTION [None]
